FAERS Safety Report 4390276-1 (Version None)
Quarter: 2004Q3

REPORT INFORMATION
  Report Type: 
  Country: None (occurrence: None)
  Receive Date: 20040706
  Receipt Date: 20040629
  Transmission Date: 20050211
  Serious: Yes (Hospitalization)
  Sender: FDA-Public Use
  Company Number: US-ROCHE-372393

PATIENT
  Age: 65 Year
  Sex: Female
  Weight: 100 kg

DRUGS (23)
  1. CAPECITABINE [Suspect]
     Indication: COLORECTAL CANCER METASTATIC
     Dosage: TAKEN AS A DIVIDED DAILY DOSE.
     Route: 048
     Dates: start: 20040415, end: 20040415
  2. BEVACIZUMAB [Suspect]
     Indication: COLORECTAL CANCER METASTATIC
     Route: 042
     Dates: start: 20040415
  3. OXALIPLATIN [Suspect]
     Indication: COLORECTAL CANCER METASTATIC
     Route: 042
     Dates: start: 20040415
  4. LEVOTHYROXINE SODIUM [Concomitant]
  5. ROFECOXIB [Concomitant]
  6. GLYBURIDE [Concomitant]
  7. DEXAMETHASONE [Concomitant]
  8. DIPHENHYDRAMINE [Concomitant]
  9. DOLASETRON [Concomitant]
  10. LORAZEPAM [Concomitant]
  11. HUMAN INSULIN [Concomitant]
  12. LOVASTATIN [Concomitant]
  13. HYDROCHLOROTHIAZIDE [Concomitant]
  14. ESOMEPRAZOLE [Concomitant]
  15. HYDROMORPHONE HCL [Concomitant]
  16. ACETAMINOPHEN AND HYDROCODONE BITARTRATE [Concomitant]
  17. ATROPINE SULPHATE [Concomitant]
  18. MORPHINE SULFATE [Concomitant]
  19. PROCHLORPERAZINE [Concomitant]
  20. DIPHENOXYLATE [Concomitant]
  21. VITAMIN NOS [Concomitant]
  22. CALCIUM [Concomitant]
  23. VITAMIN D [Concomitant]

REACTIONS (8)
  - ASTHENIA [None]
  - BLOOD CREATININE INCREASED [None]
  - BLOOD MAGNESIUM DECREASED [None]
  - BLOOD POTASSIUM DECREASED [None]
  - BLOOD PRESSURE DECREASED [None]
  - DIZZINESS [None]
  - ENTEROCUTANEOUS FISTULA [None]
  - TACHYCARDIA [None]
